FAERS Safety Report 8366450-6 (Version None)
Quarter: 2012Q2

REPORT INFORMATION
  Report Type: 
  Country: None (occurrence: None)
  Receive Date: 20120517
  Receipt Date: 20120511
  Transmission Date: 20120825
  Serious: Yes (Hospitalization, Other)
  Sender: FDA-Public Use
  Company Number: US-SANOFI-AVENTIS-2012SA019202

PATIENT
  Age: 67 Year
  Sex: Female
  Weight: 65.13 kg

DRUGS (29)
  1. ZOMETA [Concomitant]
  2. MULTI-VITAMINS [Concomitant]
  3. ASPIRIN [Concomitant]
  4. ZOLOFT [Concomitant]
  5. BLINDED THERAPY [Suspect]
     Route: 065
     Dates: start: 20110617, end: 20111005
  6. ASCORBIC ACID [Concomitant]
  7. ATIVAN [Concomitant]
  8. AMBIEN [Concomitant]
  9. MORPHINE [Concomitant]
  10. FLONASE [Concomitant]
  11. SINGULAIR [Concomitant]
  12. DOCETAXEL [Suspect]
     Route: 041
     Dates: start: 20110617, end: 20110617
  13. XANAX [Concomitant]
  14. DIPHENHYDRAMINE HCL [Concomitant]
  15. CALCIUM CARBONATE [Concomitant]
  16. VITAMIN D [Concomitant]
  17. ALLEGRA [Concomitant]
  18. BUDESONIDE [Concomitant]
  19. ALOXI [Concomitant]
  20. BLINDED THERAPY [Suspect]
     Route: 065
     Dates: start: 20111005, end: 20111028
  21. PEPCID [Concomitant]
  22. ALBUTEROL SULFATE AND IPRATROPIUM BROMIDE [Concomitant]
  23. SYNTHROID [Concomitant]
  24. AZITHROMYCIN [Concomitant]
     Dates: start: 20110823, end: 20110830
  25. DOCETAXEL [Suspect]
     Route: 041
     Dates: start: 20110908, end: 20110908
  26. COMPAZINE [Concomitant]
  27. ZOFRAN [Concomitant]
  28. MIRALAX [Concomitant]
  29. ALBUTEROL [Concomitant]

REACTIONS (3)
  - UNDERDOSE [None]
  - FEBRILE NEUTROPENIA [None]
  - FATIGUE [None]
